FAERS Safety Report 4683016-X (Version None)
Quarter: 2005Q2

REPORT INFORMATION
  Report Type: 
  Country: None (occurrence: None)
  Receive Date: 20050606
  Receipt Date: 20050303
  Transmission Date: 20051028
  Serious: Yes (Hospitalization, Disabling)
  Sender: FDA-Public Use
  Company Number: US-MERCK-0503USA00824

PATIENT
  Age: 63 Year
  Sex: Female
  Weight: 79 kg

DRUGS (4)
  1. VIOXX [Suspect]
     Indication: ARTHRITIS
     Route: 048
     Dates: start: 20020101, end: 20040930
  2. EVISTA [Concomitant]
     Route: 065
  3. LIPITOR [Concomitant]
     Route: 065
  4. LEVOTHYROXINE SODIUM [Concomitant]
     Route: 065

REACTIONS (8)
  - ANGINA UNSTABLE [None]
  - CELLULITIS [None]
  - CORONARY ARTERY DISEASE [None]
  - DIVERTICULITIS [None]
  - HERNIA [None]
  - INTRACARDIAC THROMBUS [None]
  - PAIN [None]
  - URINARY TRACT INFECTION [None]
